FAERS Safety Report 7096422-3 (Version None)
Quarter: 2010Q4

REPORT INFORMATION
  Report Type: 
  Country: None (occurrence: None)
  Receive Date: 20101111
  Receipt Date: 20090915
  Transmission Date: 20110411
  Serious: No
  Sender: FDA-Public Use
  Company Number: US-KINGPHARMUSA00001-K200901143

PATIENT
  Age: 56 Year
  Sex: Female
  Weight: 68.027 kg

DRUGS (1)
  1. BICILLIN L-A [Suspect]
     Indication: LYME DISEASE
     Dosage: 2400000 IU, BIW
     Route: 030

REACTIONS (2)
  - NO ADVERSE EVENT [None]
  - UNDERDOSE [None]
